FAERS Safety Report 16464286 (Version 1)
Quarter: 2019Q3

REPORT INFORMATION
  Report Type: Spontaneous
  Country: US (occurrence: US)
  Receive Date: 20190620
  Receipt Date: 20190620
  Transmission Date: 20191004
  Serious: Yes (Hospitalization)
  Sender: FDA-Public Use
  Company Number: None

PATIENT
  Age: 51 Year
  Sex: Male

DRUGS (5)
  1. PENTASA [Concomitant]
     Active Substance: MESALAMINE
     Dates: start: 20180606
  2. MULTI VITAMIN [Concomitant]
     Active Substance: VITAMINS
     Dates: start: 20180606
  3. ENTOCORT [Concomitant]
     Active Substance: BUDESONIDE
     Dates: start: 20180606
  4. KEPPRA [Concomitant]
     Active Substance: LEVETIRACETAM
     Dates: start: 20180606
  5. REBETOL [Suspect]
     Active Substance: RIBAVIRIN
     Indication: IMMUNODEFICIENCY COMMON VARIABLE
     Dosage: ?          OTHER FREQUENCY:TWICE DAILY;?
     Route: 048
     Dates: start: 20190605

REACTIONS (1)
  - Infection [None]

NARRATIVE: CASE EVENT DATE: 20190620
